FAERS Safety Report 10011159 (Version 1)
Quarter: 2014Q1

REPORT INFORMATION
  Report Type: Spontaneous
  Country: US (occurrence: None)
  Receive Date: 20140304
  Receipt Date: 20140304
  Transmission Date: 20141002
  Serious: Yes (Hospitalization)
  Sender: FDA-Public Use
  Company Number: RB-2010-2005

PATIENT
  Age: 37 Year
  Sex: Male
  Weight: 77.11 kg

DRUGS (2)
  1. SUBOXONE [Suspect]
     Indication: DRUG DEPENDENCE
     Dosage: 8 MG QD, CUMULATIE DOSE: 48 MG SUBLINGUAL)
     Route: 060
     Dates: start: 20050330, end: 20050404
  2. HEROIN [Suspect]
     Indication: PRODUCT USED FOR UNKNOWN INDICATION
     Dosage: DOSING DETAIL UNKNOWN

REACTIONS (5)
  - Jaundice [None]
  - Fatigue [None]
  - Nausea [None]
  - Drug abuse [None]
  - Hepatic enzyme increased [None]
